FAERS Safety Report 25023672 (Version 4)
Quarter: 2025Q4

REPORT INFORMATION
  Report Type: Spontaneous
  Country: EU (occurrence: EU)
  Receive Date: 20250228
  Receipt Date: 20251201
  Transmission Date: 20260118
  Serious: Yes (Other)
  Sender: RHYTHM PHARMACEUTICALS
  Company Number: EU-Rhythm Pharmaceuticals, Inc.-2024RHM000389

PATIENT

DRUGS (9)
  1. IMCIVREE [Suspect]
     Active Substance: SETMELANOTIDE
     Indication: Obesity
     Dosage: DOSAGE AT INITIATION AND D15 VISIT: 0.5 MG/DAY, .5 MILLIGRAM, QD
     Route: 058
     Dates: start: 20240619, end: 20240716
  2. IMCIVREE [Suspect]
     Active Substance: SETMELANOTIDE
     Dosage: M1 VISIT: 1 MG/DAY, 1 MILLIGRAM, QD
     Route: 058
     Dates: start: 20240717, end: 20250605
  3. MINIRIN [Concomitant]
     Active Substance: DESMOPRESSIN ACETATE
     Indication: Diabetes insipidus
     Dosage: 360 MICROGRAM
     Route: 048
     Dates: start: 20240705
  4. LEVOTHYROXINE [Concomitant]
     Active Substance: LEVOTHYROXINE
     Indication: Thyroid stimulating hormone deficiency
     Dosage: 150 MICROGRAM
     Route: 048
     Dates: start: 20231025
  5. DYDROGESTERONE\ESTRADIOL [Concomitant]
     Active Substance: DYDROGESTERONE\ESTRADIOL
     Indication: Amenorrhoea
     Dosage: 1/10 MG
     Route: 048
     Dates: start: 20231025
  6. HYDROCORTISONE [Concomitant]
     Active Substance: HYDROCORTISONE
     Indication: Adrenocorticotropic hormone deficiency
     Dosage: 20 MILLIGRAM
     Route: 048
  7. GENOTORM [Concomitant]
     Indication: Gonadotrophin deficiency
     Dosage: UNK UNK
     Route: 065
  8. ACETAMINOPHEN [Concomitant]
     Active Substance: ACETAMINOPHEN
     Indication: Dysmenorrhoea
     Dosage: UNK UNK
     Route: 065
     Dates: start: 20240717
  9. SPASFON [Concomitant]
     Indication: Dysmenorrhoea
     Dosage: UNK UNK
     Route: 065
     Dates: start: 20240717

REACTIONS (12)
  - Angina pectoris [Unknown]
  - Off label use [Not Recovered/Not Resolved]
  - Injection site plaque [Recovered/Resolved]
  - Oropharyngeal pain [Recovered/Resolved]
  - Pyrexia [Recovered/Resolved]
  - Epistaxis [Recovered/Resolved]
  - Pruritus [Recovered/Resolved]
  - Weight increased [Unknown]
  - Melanoderma [Not Recovered/Not Resolved]
  - Skin hyperpigmentation [Unknown]
  - Diarrhoea [Recovered/Resolved]
  - Depressed mood [Recovered/Resolved]

NARRATIVE: CASE EVENT DATE: 20240619
